FAERS Safety Report 6902277-7 (Version None)
Quarter: 2010Q3

REPORT INFORMATION
  Report Type: 
  Country: None (occurrence: None)
  Receive Date: 20100803
  Receipt Date: 20080507
  Transmission Date: 20110219
  Serious: No
  Sender: FDA-Public Use
  Company Number: US-PFIZER INC-2008028584

PATIENT
  Sex: Female
  Weight: 56.8 kg

DRUGS (4)
  1. LYRICA [Suspect]
     Indication: FIBROMYALGIA
     Route: 048
     Dates: start: 20080401
  2. PERCOCET [Concomitant]
  3. NEURONTIN [Concomitant]
  4. ACETYLSALICYLIC ACID SRT [Concomitant]

REACTIONS (3)
  - COLD SWEAT [None]
  - NEUROPATHY PERIPHERAL [None]
  - RESTLESSNESS [None]
